FAERS Safety Report 23625007 (Version 1)
Quarter: 2024Q1

REPORT INFORMATION
  Report Type: Spontaneous
  Country: PL (occurrence: None)
  Receive Date: 20240313
  Receipt Date: 20240313
  Transmission Date: 20240410
  Serious: Yes (Other)
  Sender: FDA-Public Use
  Company Number: 2024A057903

PATIENT
  Sex: Female

DRUGS (14)
  1. QUETIAPINE FUMARATE [Suspect]
     Active Substance: QUETIAPINE FUMARATE
     Indication: Product used for unknown indication
     Route: 048
  2. QUETIAPINE FUMARATE [Suspect]
     Active Substance: QUETIAPINE FUMARATE
     Indication: Product used for unknown indication
     Route: 048
     Dates: start: 20240123
  3. BRINTELLIX [Suspect]
     Active Substance: VORTIOXETINE HYDROBROMIDE
     Indication: Anxiety
     Dosage: IN THE MORNING
     Dates: start: 20231228, end: 20240123
  4. BRINTELLIX [Suspect]
     Active Substance: VORTIOXETINE HYDROBROMIDE
     Indication: Depression
     Dosage: IN THE MORNING
     Dates: start: 20231228, end: 20240123
  5. BRINTELLIX [Suspect]
     Active Substance: VORTIOXETINE HYDROBROMIDE
     Indication: Neurosis
     Dosage: IN THE MORNING
     Dates: start: 20231228, end: 20240123
  6. BRINTELLIX [Suspect]
     Active Substance: VORTIOXETINE HYDROBROMIDE
     Indication: Anxiety
     Dates: start: 20240124, end: 20240217
  7. BRINTELLIX [Suspect]
     Active Substance: VORTIOXETINE HYDROBROMIDE
     Indication: Depression
     Dates: start: 20240124, end: 20240217
  8. BRINTELLIX [Suspect]
     Active Substance: VORTIOXETINE HYDROBROMIDE
     Indication: Neurosis
     Dates: start: 20240124, end: 20240217
  9. BRINTELLIX [Suspect]
     Active Substance: VORTIOXETINE HYDROBROMIDE
     Indication: Anxiety
     Dosage: 10.0MG UNKNOWN
     Dates: start: 20240218
  10. BRINTELLIX [Suspect]
     Active Substance: VORTIOXETINE HYDROBROMIDE
     Indication: Depression
     Dosage: 10.0MG UNKNOWN
     Dates: start: 20240218
  11. BRINTELLIX [Suspect]
     Active Substance: VORTIOXETINE HYDROBROMIDE
     Indication: Neurosis
     Dosage: 10.0MG UNKNOWN
     Dates: start: 20240218
  12. BRINTELLIX [Suspect]
     Active Substance: VORTIOXETINE HYDROBROMIDE
     Indication: Anxiety
     Dosage: UNKNOWN
  13. BRINTELLIX [Suspect]
     Active Substance: VORTIOXETINE HYDROBROMIDE
     Indication: Depression
     Dosage: UNKNOWN
  14. BRINTELLIX [Suspect]
     Active Substance: VORTIOXETINE HYDROBROMIDE
     Indication: Neurosis
     Dosage: UNKNOWN

REACTIONS (1)
  - Postmenopausal haemorrhage [Recovered/Resolved]

NARRATIVE: CASE EVENT DATE: 20240215
